FAERS Safety Report 6664709-1 (Version None)
Quarter: 2010Q1

REPORT INFORMATION
  Report Type: 
  Country: None (occurrence: None)
  Receive Date: 20100330
  Receipt Date: 20100210
  Transmission Date: 20100710
  Serious: Yes (Death)
  Sender: FDA-Public Use
  Company Number: 6057920

PATIENT
  Age: 77 Year
  Sex: Male

DRUGS (13)
  1. LEVOTHYROXINE SODIUM [Suspect]
     Indication: HYPOTHYROIDISM
     Dosage: 1 DOSAGE FORMS - 1 DOSAGE FORMS1 IN 1 D) ORAL
     Route: 048
     Dates: end: 20100113
  2. ZOLOFT [Suspect]
     Dosage: 1 DOSAGE FORMS - I IN 1 D) ORAL
     Route: 048
     Dates: end: 20100113
  3. SERASTA (10 MG TABLET) (OXAZEPAM) [Concomitant]
  4. INEXIUM (20 MG, GASTRO-RESISTANT TABLET) (ESOMEPRAZOLE MAGNESIUM) [Concomitant]
  5. TAHOR (20 MG, COATED TABLET) (ATORVASTIN CALCIUM) [Concomitant]
  6. KREDEX (6.5 MG, TABLET) (CARVEDILOL) [Concomitant]
  7. DISCOTRINE (5 MG) (GLYCERYL TRINITRATE) [Concomitant]
  8. KARDEGIC (160 MG, POWDER FOR ORAL SOLUTION) ACETYLSALICYLATE LYSINE [Concomitant]
  9. LASIX [Concomitant]
  10. POTASSIUM CHLORIDE [Concomitant]
  11. STABLON (12.5 MG, TABLET) (TIANEPTINE) [Concomitant]
  12. KAYEXALATE (POWDER AND SOLVENT FOR ORAL SOLUTION) (SODIUM POLYSTYRENE [Concomitant]
  13. ATARAX [Concomitant]

REACTIONS (8)
  - CARDIAC FAILURE [None]
  - DEPRESSION [None]
  - DISSEMINATED INTRAVASCULAR COAGULATION [None]
  - GENERAL PHYSICAL HEALTH DETERIORATION [None]
  - HYPERCHOLESTEROLAEMIA [None]
  - HYPERTENSION [None]
  - HYPOKALAEMIA [None]
  - MYELOMA RECURRENCE [None]
